FAERS Safety Report 5885708-3 (Version None)
Quarter: 2008Q3

REPORT INFORMATION
  Report Type: 
  Country: None (occurrence: None)
  Receive Date: 20080912
  Receipt Date: 20080905
  Transmission Date: 20090109
  Serious: Yes (Other)
  Sender: FDA-Public Use
  Company Number: 2008SP005345

PATIENT
  Age: 58 Year
  Sex: Male

DRUGS (5)
  1. PEG-INTRON (PEGINERFERON ALFA-2B) (PEGINTERFERON ALFA-2B) [Suspect]
     Indication: HEPATITIS C
     Dosage: 100 MCG;QW;SC
     Route: 058
     Dates: start: 20071219, end: 20080303
  2. REBETOL [Suspect]
     Indication: HEPATITIS C
     Dosage: 800 MG;QD;PO
     Route: 048
     Dates: start: 20071219, end: 20080303
  3. LOXONIN [Concomitant]
  4. NEUER [Concomitant]
  5. SEIBULE [Concomitant]

REACTIONS (4)
  - ANURIA [None]
  - BLADDER DISORDER [None]
  - HYPOAESTHESIA [None]
  - LYMPHOMA [None]
